FAERS Safety Report 19156604 (Version 5)
Quarter: 2022Q1

REPORT INFORMATION
  Report Type: Spontaneous
  Country: PT (occurrence: PT)
  Receive Date: 20210420
  Receipt Date: 20220324
  Transmission Date: 20220423
  Serious: Yes (Other)
  Sender: FDA-Public Use
  Company Number: PT-MYLANLABS-2021M1020367

PATIENT
  Age: 51 Year
  Sex: Female

DRUGS (90)
  1. AMITRIPTYLINE [Suspect]
     Active Substance: AMITRIPTYLINE
     Indication: Product used for unknown indication
     Dosage: UNK
     Route: 065
  2. DEFLAZACORT [Suspect]
     Active Substance: DEFLAZACORT
     Indication: Complex regional pain syndrome
     Dosage: UNK
     Route: 065
  3. DEFLAZACORT [Suspect]
     Active Substance: DEFLAZACORT
     Indication: Sleep disorder
  4. DEFLAZACORT [Suspect]
     Active Substance: DEFLAZACORT
     Indication: Skin disorder
  5. DEFLAZACORT [Suspect]
     Active Substance: DEFLAZACORT
     Indication: Sleep disorder
     Dosage: UNK
     Route: 065
  6. DEFLAZACORT [Suspect]
     Active Substance: DEFLAZACORT
     Indication: Skin disorder
  7. DEFLAZACORT [Suspect]
     Active Substance: DEFLAZACORT
     Indication: Complex regional pain syndrome
  8. DULOXETINE [Suspect]
     Active Substance: DULOXETINE
     Indication: Product used for unknown indication
     Dosage: UNK
     Route: 065
  9. DULOXETINE [Suspect]
     Active Substance: DULOXETINE
     Indication: Complex regional pain syndrome
     Dosage: 30 MILLIGRAM
     Route: 065
  10. DULOXETINE [Suspect]
     Active Substance: DULOXETINE
     Indication: Skin disorder
     Dosage: 60 MILLIGRAM
     Route: 065
  11. DULOXETINE [Suspect]
     Active Substance: DULOXETINE
     Indication: Sleep disorder
  12. PHENYTOIN [Suspect]
     Active Substance: PHENYTOIN
     Indication: Complex regional pain syndrome
     Dosage: 200 MILLIGRAM, ONCE A DAY (100 MILLIGRAM, BID)
     Route: 065
  13. TRAZODONE [Suspect]
     Active Substance: TRAZODONE HYDROCHLORIDE
     Indication: Complex regional pain syndrome
     Dosage: 150 MILLIGRAM, ONCE A DAY
     Route: 065
  14. ACEMETACIN [Suspect]
     Active Substance: ACEMETACIN
     Indication: Product used for unknown indication
     Dosage: 180 MILLIGRAM, ONCE A DAY (90 MILLIGRAM, BID)
     Route: 065
  15. AMITRIPTYLINE HYDROCHLORIDE [Suspect]
     Active Substance: AMITRIPTYLINE HYDROCHLORIDE
     Indication: Product used for unknown indication
     Dosage: UNK
     Route: 065
  16. AMITRIPTYLINE HYDROCHLORIDE [Suspect]
     Active Substance: AMITRIPTYLINE HYDROCHLORIDE
     Indication: Skin disorder
     Dosage: 10 MILLIGRAM
     Route: 065
  17. AMITRIPTYLINE HYDROCHLORIDE [Suspect]
     Active Substance: AMITRIPTYLINE HYDROCHLORIDE
     Indication: Complex regional pain syndrome
     Dosage: 25 MILLIGRAM
     Route: 065
  18. AMITRIPTYLINE HYDROCHLORIDE [Suspect]
     Active Substance: AMITRIPTYLINE HYDROCHLORIDE
     Indication: Sleep disorder
  19. CLONAZEPAM [Suspect]
     Active Substance: CLONAZEPAM
     Indication: Product used for unknown indication
     Dosage: 0.5 MILLIGRAM, ONCE A DAY
     Route: 065
  20. ACETAMINOPHEN\CODEINE PHOSPHATE [Suspect]
     Active Substance: ACETAMINOPHEN\CODEINE PHOSPHATE
     Indication: Complex regional pain syndrome
     Dosage: 1590 MILLIGRAM, ONCE A DAY (30/500MG THREE TIMES DAILY)
     Route: 065
  21. CYCLOBENZAPRINE [Suspect]
     Active Substance: CYCLOBENZAPRINE
     Indication: Complex regional pain syndrome
     Dosage: 10 MILLIGRAM, ONCE A DAY
     Route: 065
  22. DULOXETINE HYDROCHLORIDE [Suspect]
     Active Substance: DULOXETINE HYDROCHLORIDE
     Indication: Sleep disorder
     Dosage: UNK
     Route: 065
  23. DULOXETINE HYDROCHLORIDE [Suspect]
     Active Substance: DULOXETINE HYDROCHLORIDE
     Indication: Complex regional pain syndrome
  24. DULOXETINE HYDROCHLORIDE [Suspect]
     Active Substance: DULOXETINE HYDROCHLORIDE
     Indication: Skin disorder
  25. VENLAFAXINE HYDROCHLORIDE [Suspect]
     Active Substance: VENLAFAXINE HYDROCHLORIDE
     Indication: Sleep disorder
     Dosage: 150 MILLIGRAM, ONCE A DAY
     Route: 065
  26. VENLAFAXINE HYDROCHLORIDE [Suspect]
     Active Substance: VENLAFAXINE HYDROCHLORIDE
     Indication: Complex regional pain syndrome
  27. VENLAFAXINE HYDROCHLORIDE [Suspect]
     Active Substance: VENLAFAXINE HYDROCHLORIDE
     Indication: Skin disorder
  28. ETORICOXIB [Suspect]
     Active Substance: ETORICOXIB
     Indication: Skin disorder
     Dosage: UNK
     Route: 065
  29. ETORICOXIB [Suspect]
     Active Substance: ETORICOXIB
     Indication: Complex regional pain syndrome
  30. ETORICOXIB [Suspect]
     Active Substance: ETORICOXIB
     Indication: Sleep disorder
  31. ETORICOXIB [Suspect]
     Active Substance: ETORICOXIB
     Indication: Skin disorder
     Dosage: UNK
     Route: 065
  32. ETORICOXIB [Suspect]
     Active Substance: ETORICOXIB
     Indication: Complex regional pain syndrome
  33. ETORICOXIB [Suspect]
     Active Substance: ETORICOXIB
     Indication: Sleep disorder
  34. FOSAVANCE [Suspect]
     Active Substance: ALENDRONATE SODIUM\CHOLECALCIFEROL
     Indication: Sleep disorder
     Dosage: UNK,70MG/5600UI
     Route: 065
  35. FOSAVANCE [Suspect]
     Active Substance: ALENDRONATE SODIUM\CHOLECALCIFEROL
     Indication: Skin disorder
  36. FOSAVANCE [Suspect]
     Active Substance: ALENDRONATE SODIUM\CHOLECALCIFEROL
     Indication: Complex regional pain syndrome
  37. IBUPROFEN [Suspect]
     Active Substance: IBUPROFEN
     Indication: Sleep disorder
     Dosage: UNK
     Route: 065
  38. IBUPROFEN [Suspect]
     Active Substance: IBUPROFEN
     Indication: Complex regional pain syndrome
  39. IBUPROFEN [Suspect]
     Active Substance: IBUPROFEN
     Indication: Skin disorder
  40. IBUPROFEN [Suspect]
     Active Substance: IBUPROFEN
     Indication: Complex regional pain syndrome
     Dosage: UNK
     Route: 065
  41. IBUPROFEN [Suspect]
     Active Substance: IBUPROFEN
     Indication: Sleep disorder
  42. IBUPROFEN [Suspect]
     Active Substance: IBUPROFEN
     Indication: Skin disorder
  43. LYRICA [Suspect]
     Active Substance: PREGABALIN
     Indication: Skin disorder
     Dosage: 75 MILLIGRAM
     Route: 065
  44. LYRICA [Suspect]
     Active Substance: PREGABALIN
     Indication: Complex regional pain syndrome
     Dosage: 150 MILLIGRAM
     Route: 065
  45. LYRICA [Suspect]
     Active Substance: PREGABALIN
     Indication: Sleep disorder
     Dosage: 600 MILLIGRAM, ONCE A DAY
     Route: 065
  46. LYRICA [Suspect]
     Active Substance: PREGABALIN
     Indication: Product used for unknown indication
     Dosage: 600 MILLIGRAM, ONCE A DAY (300 MILLIGRAM, BID)
     Route: 065
  47. METAMIZOLE [Suspect]
     Active Substance: METAMIZOLE
     Indication: Complex regional pain syndrome
     Dosage: 575 MILLIGRAM, ONCE A DAY
     Route: 065
  48. NAPROSYN [Suspect]
     Active Substance: NAPROXEN
     Indication: Sleep disorder
     Dosage: 100 MILLIGRAM, ONCE A DAY
     Route: 065
  49. NAPROSYN [Suspect]
     Active Substance: NAPROXEN
     Indication: Skin disorder
     Dosage: 1000 MILLIGRAM, ONCE A DAY(500 MILLIGRAM, TWO TIMES A DAY )
     Route: 065
  50. NAPROSYN [Suspect]
     Active Substance: NAPROXEN
     Indication: Complex regional pain syndrome
  51. NORTRIPTYLINE [Suspect]
     Active Substance: NORTRIPTYLINE
     Indication: Complex regional pain syndrome
     Dosage: UNK
     Route: 065
  52. NORTRIPTYLINE [Suspect]
     Active Substance: NORTRIPTYLINE
     Indication: Sleep disorder
  53. NORTRIPTYLINE [Suspect]
     Active Substance: NORTRIPTYLINE
     Indication: Skin disorder
  54. PALEXIA [Suspect]
     Active Substance: TAPENTADOL HYDROCHLORIDE
     Indication: Product used for unknown indication
     Dosage: UNK
     Route: 065
  55. PALEXIA [Suspect]
     Active Substance: TAPENTADOL HYDROCHLORIDE
     Indication: Sleep disorder
     Dosage: 50 MILLIGRAM
     Route: 065
  56. PALEXIA [Suspect]
     Active Substance: TAPENTADOL HYDROCHLORIDE
     Indication: Complex regional pain syndrome
     Dosage: 100 MILLIGRAM
     Route: 065
  57. PALEXIA [Suspect]
     Active Substance: TAPENTADOL HYDROCHLORIDE
     Indication: Skin disorder
  58. ACETAMINOPHEN [Suspect]
     Active Substance: ACETAMINOPHEN
     Indication: Sleep disorder
     Dosage: UNK
     Route: 065
  59. ACETAMINOPHEN [Suspect]
     Active Substance: ACETAMINOPHEN
     Indication: Complex regional pain syndrome
  60. ACETAMINOPHEN [Suspect]
     Active Substance: ACETAMINOPHEN
     Indication: Skin disorder
  61. DEFLAZACORT [Suspect]
     Active Substance: DEFLAZACORT
     Indication: Complex regional pain syndrome
     Dosage: UNK
     Route: 065
  62. DEFLAZACORT [Suspect]
     Active Substance: DEFLAZACORT
     Indication: Sleep disorder
  63. DEFLAZACORT [Suspect]
     Active Substance: DEFLAZACORT
     Indication: Skin disorder
  64. NALOXONE HYDROCHLORIDE\OXYCODONE HYDROCHLORIDE [Suspect]
     Active Substance: NALOXONE HYDROCHLORIDE\OXYCODONE HYDROCHLORIDE
     Indication: Skin disorder
     Dosage: UNK
     Route: 065
  65. NALOXONE HYDROCHLORIDE\OXYCODONE HYDROCHLORIDE [Suspect]
     Active Substance: NALOXONE HYDROCHLORIDE\OXYCODONE HYDROCHLORIDE
     Indication: Complex regional pain syndrome
  66. NALOXONE HYDROCHLORIDE\OXYCODONE HYDROCHLORIDE [Suspect]
     Active Substance: NALOXONE HYDROCHLORIDE\OXYCODONE HYDROCHLORIDE
     Indication: Sleep disorder
  67. PENTOSAN POLYSULFATE SODIUM [Suspect]
     Active Substance: PENTOSAN POLYSULFATE SODIUM
     Indication: Skin disorder
     Dosage: UNK
     Route: 065
  68. PENTOSAN POLYSULFATE SODIUM [Suspect]
     Active Substance: PENTOSAN POLYSULFATE SODIUM
     Indication: Sleep disorder
  69. PENTOSAN POLYSULFATE SODIUM [Suspect]
     Active Substance: PENTOSAN POLYSULFATE SODIUM
     Indication: Complex regional pain syndrome
  70. BUPRENORPHINE [Suspect]
     Active Substance: BUPRENORPHINE
     Indication: Sleep disorder
     Dosage: 37.5 MCG/H/ TRANSDERMAL
     Route: 065
  71. BUPRENORPHINE [Suspect]
     Active Substance: BUPRENORPHINE
     Indication: Complex regional pain syndrome
  72. BUPRENORPHINE [Suspect]
     Active Substance: BUPRENORPHINE
     Indication: Skin disorder
  73. TRENTAL [Suspect]
     Active Substance: PENTOXIFYLLINE
     Indication: Sleep disorder
     Dosage: UNK
     Route: 065
  74. TRENTAL [Suspect]
     Active Substance: PENTOXIFYLLINE
     Indication: Skin disorder
  75. TRENTAL [Suspect]
     Active Substance: PENTOXIFYLLINE
     Indication: Complex regional pain syndrome
  76. TRAZODONE HYDROCHLORIDE [Suspect]
     Active Substance: TRAZODONE HYDROCHLORIDE
     Indication: Complex regional pain syndrome
     Dosage: 150 MILLIGRAM, ONCE A DAY
     Route: 065
  77. TRAZODONE HYDROCHLORIDE [Suspect]
     Active Substance: TRAZODONE HYDROCHLORIDE
     Indication: Skin disorder
  78. TRAZODONE HYDROCHLORIDE [Suspect]
     Active Substance: TRAZODONE HYDROCHLORIDE
     Indication: Sleep disorder
  79. DIAZEPAM [Suspect]
     Active Substance: DIAZEPAM
     Indication: Complex regional pain syndrome
     Dosage: UNK
     Route: 065
  80. DIAZEPAM [Suspect]
     Active Substance: DIAZEPAM
     Indication: Sleep disorder
  81. DIAZEPAM [Suspect]
     Active Substance: DIAZEPAM
     Indication: Skin disorder
  82. VENLAFAXINE HYDROCHLORIDE [Suspect]
     Active Substance: VENLAFAXINE HYDROCHLORIDE
     Indication: Skin disorder
     Dosage: 150 MILLIGRAM, ONCE A DAY
     Route: 065
  83. VENLAFAXINE HYDROCHLORIDE [Suspect]
     Active Substance: VENLAFAXINE HYDROCHLORIDE
     Indication: Complex regional pain syndrome
  84. VENLAFAXINE HYDROCHLORIDE [Suspect]
     Active Substance: VENLAFAXINE HYDROCHLORIDE
     Indication: Sleep disorder
  85. METAMIZOLE MAGNESIUM [Suspect]
     Active Substance: METAMIZOLE MAGNESIUM
     Indication: Skin disorder
     Dosage: UNK
     Route: 065
  86. METAMIZOLE MAGNESIUM [Suspect]
     Active Substance: METAMIZOLE MAGNESIUM
     Indication: Complex regional pain syndrome
  87. METAMIZOLE MAGNESIUM [Suspect]
     Active Substance: METAMIZOLE MAGNESIUM
     Indication: Sleep disorder
  88. VENLAFAXINE HYDROCHLORIDE [Interacting]
     Active Substance: VENLAFAXINE HYDROCHLORIDE
     Indication: Skin disorder
     Dosage: UNK
     Route: 065
  89. VENLAFAXINE HYDROCHLORIDE [Interacting]
     Active Substance: VENLAFAXINE HYDROCHLORIDE
     Indication: Complex regional pain syndrome
  90. VENLAFAXINE HYDROCHLORIDE [Interacting]
     Active Substance: VENLAFAXINE HYDROCHLORIDE
     Indication: Sleep disorder

REACTIONS (19)
  - Suicidal ideation [Unknown]
  - Major depression [Unknown]
  - Drug intolerance [Unknown]
  - Neck pain [Unknown]
  - Peripheral coldness [Unknown]
  - Pain [Unknown]
  - Hyperhidrosis [Unknown]
  - Muscular weakness [Unknown]
  - Hypokinesia [Unknown]
  - Joint contracture [Unknown]
  - Hypotonia [Unknown]
  - Diarrhoea [Unknown]
  - Allodynia [Unknown]
  - Back pain [Unknown]
  - Hyperaesthesia [Unknown]
  - Pyrexia [Unknown]
  - Skin atrophy [Unknown]
  - Nausea [Unknown]
  - Oedema [Unknown]
